FAERS Safety Report 10101100 (Version 1)
Quarter: 2014Q2

REPORT INFORMATION
  Report Type: Spontaneous
  Country: CA (occurrence: CA)
  Receive Date: 20140424
  Receipt Date: 20140424
  Transmission Date: 20141212
  Serious: Yes (Other)
  Sender: FDA-Public Use
  Company Number: CA-AMGEN INC.-CANSP2014028095

PATIENT
  Age: 80 Year
  Sex: Female

DRUGS (4)
  1. PROLIA [Suspect]
     Indication: OSTEOPOROSIS POSTMENOPAUSAL
     Dosage: 60 MG/ML, UNK
     Route: 065
     Dates: start: 20130403
  2. CIPRO                              /00697201/ [Concomitant]
     Dosage: UNK
  3. CALCIUM [Concomitant]
  4. VITAMIN D                          /00107901/ [Concomitant]

REACTIONS (3)
  - Urinary tract infection [Unknown]
  - Vomiting [Unknown]
  - Chest pain [Unknown]
